FAERS Safety Report 9934957 (Version 3)
Quarter: 2014Q2

REPORT INFORMATION
  Report Type: Spontaneous
  Country: JP (occurrence: JP)
  Receive Date: 20140228
  Receipt Date: 20140627
  Transmission Date: 20141212
  Serious: No
  Sender: FDA-Public Use
  Company Number: JP-UCBSA-108052

PATIENT
  Age: 25 Year
  Sex: Female

DRUGS (3)
  1. XYZAL [Suspect]
     Indication: DERMATITIS CONTACT
     Dosage: 10 MG, ONCE DAILY (QD)
     Route: 048
     Dates: start: 20131114, end: 201312
  2. XYZAL [Suspect]
     Dosage: 5 MG, ONCE DAILY (QD)
     Route: 048
     Dates: start: 20131114, end: 2013
  3. ALLEGRA [Concomitant]
     Dosage: TABLET
     Route: 048
     Dates: start: 20131024

REACTIONS (6)
  - Tremor [Recovered/Resolved]
  - Headache [Recovered/Resolved]
  - Nausea [Recovered/Resolved]
  - Anxiety [Recovered/Resolved]
  - Irritability [Recovered/Resolved]
  - Drug effect incomplete [Unknown]
